FAERS Safety Report 25952630 (Version 1)
Quarter: 2025Q4

REPORT INFORMATION
  Report Type: Spontaneous
  Country: EU (occurrence: EU)
  Receive Date: 20251023
  Receipt Date: 20251023
  Transmission Date: 20260118
  Serious: Yes (Congenital Anomaly, Other)
  Sender: NOVARTIS
  Company Number: EU-002147023-NVSC2025RO149360

PATIENT
  Sex: Female

DRUGS (1)
  1. KESIMPTA [Suspect]
     Active Substance: OFATUMUMAB
     Indication: Foetal exposure during pregnancy
     Dosage: UNK MATERNAL EXPOSURE DURING PREGNANCY: UNK, QMO
     Route: 064
     Dates: start: 202207, end: 20241118

REACTIONS (3)
  - Vertical talus [Unknown]
  - Thrombocytosis [Unknown]
  - Foetal exposure during pregnancy [Unknown]
